FAERS Safety Report 19085633 (Version 2)
Quarter: 2022Q1

REPORT INFORMATION
  Report Type: Spontaneous
  Country: FR (occurrence: FR)
  Receive Date: 20210401
  Receipt Date: 20220107
  Transmission Date: 20220424
  Serious: Yes (Other)
  Sender: FDA-Public Use
  Company Number: FR-SUN PHARMACEUTICAL INDUSTRIES LTD-2021RR-288800

PATIENT
  Sex: Female

DRUGS (1)
  1. ACETAMINOPHEN [Suspect]
     Active Substance: ACETAMINOPHEN
     Indication: Product used for unknown indication
     Dosage: INGESTION OF 8 TO 10 GRAMS OF PARACETAMOL ON AVERAGE, ABOUT 10 POISONINGS PER YEAR
     Route: 065
     Dates: start: 2006

REACTIONS (1)
  - Toxicity to various agents [Unknown]
